FAERS Safety Report 9607756 (Version 1)
Quarter: 2013Q4

REPORT INFORMATION
  Report Type: Spontaneous
  Country: US (occurrence: None)
  Receive Date: 20131008
  Receipt Date: 20131008
  Transmission Date: 20140711
  Serious: Yes (Other)
  Sender: FDA-Public Use
  Company Number: None

PATIENT
  Sex: Female

DRUGS (11)
  1. GABAPENTIN [Suspect]
     Indication: HERPES ZOSTER
     Dosage: 1-PILL, TWICE DAILY, BY MOUTH
     Route: 048
     Dates: start: 20120801, end: 20130725
  2. CENTRUM VITAMINS LIQUID [Concomitant]
  3. GLUCOSAMINE + CHONDROITIN [Concomitant]
  4. ASA [Concomitant]
  5. CALCIUM + VIT D [Concomitant]
  6. ATORVASTATIN [Concomitant]
  7. LISINOPRIL [Concomitant]
  8. AMLODIPINE [Concomitant]
  9. RANITIDINE [Concomitant]
  10. LANTUS INSULIN [Concomitant]
  11. NOVOLOG INSULIN [Concomitant]

REACTIONS (2)
  - Hypoaesthesia [None]
  - Dizziness [None]
